FAERS Safety Report 11451906 (Version 1)
Quarter: 2015Q3

REPORT INFORMATION
  Report Type: Spontaneous
  Country: US (occurrence: None)
  Receive Date: 20150902
  Receipt Date: 20150902
  Transmission Date: 20151125
  Serious: Yes (Other)
  Sender: FDA-Public Use
  Company Number: None

PATIENT
  Age: 68 Year
  Sex: Female

DRUGS (1)
  1. NORTHERA [Suspect]
     Active Substance: DROXIDOPA
     Indication: ORTHOSTATIC HYPOTENSION
     Dosage: UNKNOWN
     Route: 048
     Dates: start: 20150701, end: 20150901

REACTIONS (2)
  - Hypotension [None]
  - Hypertension [None]

NARRATIVE: CASE EVENT DATE: 20150831
